FAERS Safety Report 10100792 (Version 1)
Quarter: 2014Q2

REPORT INFORMATION
  Report Type: Spontaneous
  Country: IT (occurrence: IT)
  Receive Date: 20140423
  Receipt Date: 20140423
  Transmission Date: 20141212
  Serious: Yes (Other)
  Sender: FDA-Public Use
  Company Number: IT-MYLANLABS-2014S1008723

PATIENT
  Age: 53 Year
  Sex: Male

DRUGS (6)
  1. CLOPIDOGREL [Suspect]
     Indication: ACUTE MYOCARDIAL INFARCTION
     Dosage: 1 DF DAILY
     Route: 048
     Dates: start: 20140201
  2. CARDIOASPIRIN [Concomitant]
     Indication: ACUTE MYOCARDIAL INFARCTION
     Route: 048
  3. ATORVASTATIN [Concomitant]
     Indication: PRODUCT USED FOR UNKNOWN INDICATION
  4. PANTOPRAZOLE [Concomitant]
     Indication: PRODUCT USED FOR UNKNOWN INDICATION
  5. ENALAPRIL [Concomitant]
     Indication: PRODUCT USED FOR UNKNOWN INDICATION
  6. BISOPROLOL HEMIFUMARATE [Concomitant]
     Indication: PRODUCT USED FOR UNKNOWN INDICATION

REACTIONS (2)
  - Generalised oedema [Recovering/Resolving]
  - Eye pruritus [Recovering/Resolving]
